FAERS Safety Report 18653303 (Version 2)
Quarter: 2020Q4

REPORT INFORMATION
  Report Type: Spontaneous
  Country: AU (occurrence: AU)
  Receive Date: 20201222
  Receipt Date: 20201223
  Transmission Date: 20210114
  Serious: Yes (Other)
  Sender: FDA-Public Use
  Company Number: AU-JNJFOC-20201225291

PATIENT
  Sex: Male

DRUGS (3)
  1. RISPERDAL [Suspect]
     Active Substance: RISPERIDONE
     Indication: SCHIZOPHRENIA
     Route: 065
  2. RISPERDAL [Suspect]
     Active Substance: RISPERIDONE
     Dosage: 2MG IN MORNING AND 4MG IN EVENING
     Route: 065
  3. CLOZAPINE. [Suspect]
     Active Substance: CLOZAPINE
     Indication: SCHIZOPHRENIA
     Route: 065

REACTIONS (11)
  - Sedation [Unknown]
  - Pyrexia [Unknown]
  - Drug ineffective [Unknown]
  - Gout [Unknown]
  - C-reactive protein increased [Unknown]
  - Lethargy [Unknown]
  - Treatment noncompliance [Unknown]
  - Nausea [Unknown]
  - Troponin increased [Unknown]
  - Liver function test increased [Unknown]
  - Vomiting [Unknown]

NARRATIVE: CASE EVENT DATE: 20200227
